FAERS Safety Report 8610844-8 (Version None)
Quarter: 2012Q3

REPORT INFORMATION
  Report Type: 
  Country: None (occurrence: None)
  Receive Date: 20120822
  Receipt Date: 20120813
  Transmission Date: 20120928
  Serious: Yes (Other)
  Sender: FDA-Public Use
  Company Number: US-JNJFOC-20120807992

PATIENT
  Age: 32 Year
  Sex: Female
  Weight: 62.14 kg

DRUGS (2)
  1. MULTI-VITAMINS [Concomitant]
     Indication: NUTRITIONAL SUPPORT
     Route: 048
  2. ELMIRON [Suspect]
     Indication: CYSTITIS INTERSTITIAL
     Route: 048

REACTIONS (3)
  - ECTOPIC PREGNANCY [None]
  - PROTEIN S DECREASED [None]
  - MATERNAL EXPOSURE DURING PREGNANCY [None]
